FAERS Safety Report 6194350-9 (Version None)
Quarter: 2009Q2

REPORT INFORMATION
  Report Type: 
  Country: None (occurrence: None)
  Receive Date: 20090515
  Receipt Date: 20090504
  Transmission Date: 20091009
  Serious: Yes (Death, Hospitalization)
  Sender: FDA-Public Use
  Company Number: 2009-01110

PATIENT
  Age: 89 Year
  Sex: Female

DRUGS (4)
  1. VELCADE [Suspect]
     Indication: MULTIPLE MYELOMA
     Dosage: INTRAVENOUS
     Route: 042
     Dates: start: 20090201
  2. ARANESP [Concomitant]
  3. CLASTOBAN (CLODRONATE DISODIUM) [Concomitant]
  4. FUROSEMIDE [Concomitant]

REACTIONS (1)
  - INTESTINAL PERFORATION [None]
